FAERS Safety Report 7479314-7 (Version None)
Quarter: 2011Q2

REPORT INFORMATION
  Report Type: 
  Country: None (occurrence: None)
  Receive Date: 20110513
  Receipt Date: 20110506
  Transmission Date: 20111010
  Serious: Yes (Hospitalization, Other)
  Sender: FDA-Public Use
  Company Number: FR-PFIZER INC-2011097529

PATIENT
  Age: 41 Year
  Sex: Female

DRUGS (2)
  1. SIROLIMUS [Suspect]
     Indication: IMMUNOSUPPRESSANT DRUG THERAPY
     Dosage: 5 MG, 1X/DAY
     Route: 048
     Dates: start: 20060202
  2. CELLCEPT [Suspect]
     Indication: IMMUNOSUPPRESSANT DRUG THERAPY
     Dosage: 750 MG, 1X/DAY
     Route: 048
     Dates: start: 20060202

REACTIONS (4)
  - PYELONEPHRITIS ACUTE [None]
  - CYSTITIS BACTERIAL [None]
  - RENAL FAILURE ACUTE [None]
  - KLEBSIELLA INFECTION [None]
